FAERS Safety Report 18784597 (Version 13)
Quarter: 2023Q2

REPORT INFORMATION
  Report Type: Spontaneous
  Country: US (occurrence: US)
  Receive Date: 20210125
  Receipt Date: 20230622
  Transmission Date: 20230722
  Serious: Yes (Other)
  Sender: FDA-Public Use
  Company Number: US-PFIZER INC-2021061507

PATIENT
  Age: 65 Year
  Sex: Female

DRUGS (7)
  1. IBRANCE [Interacting]
     Active Substance: PALBOCICLIB
     Indication: Breast cancer female
     Dosage: 100 MG
     Dates: start: 20210115
  2. IBRANCE [Interacting]
     Active Substance: PALBOCICLIB
     Dosage: 100 MG
     Dates: start: 20210117
  3. IBRANCE [Interacting]
     Active Substance: PALBOCICLIB
     Dosage: 100 MG
     Dates: start: 20210118
  4. IBRANCE [Interacting]
     Active Substance: PALBOCICLIB
     Dosage: 100 MG
     Dates: start: 20210504
  5. IBRANCE [Interacting]
     Active Substance: PALBOCICLIB
     Dosage: 75 MG, CYCLIC (TAKE ONE TAB PO QD, 2 WEEKS ON AND 2 WEEKS OFF)
     Route: 048
  6. IBRANCE [Interacting]
     Active Substance: PALBOCICLIB
     Dosage: 75 MG, CYCLIC (21 PILLS)
  7. WARFARIN [Interacting]
     Active Substance: WARFARIN
     Dosage: UNK

REACTIONS (22)
  - Weight decreased [Unknown]
  - Off label use [Unknown]
  - Nausea [Unknown]
  - Memory impairment [Unknown]
  - Muscular weakness [Unknown]
  - Eating disorder [Unknown]
  - Ageusia [Recovered/Resolved]
  - Dysgeusia [Unknown]
  - Nocturia [Unknown]
  - Dyspnoea [Unknown]
  - Alopecia [Not Recovered/Not Resolved]
  - Palpitations [Unknown]
  - Haemoglobin decreased [Unknown]
  - Fatigue [Recovering/Resolving]
  - Dizziness [Unknown]
  - Asthenia [Unknown]
  - Pain [Unknown]
  - Brain fog [Unknown]
  - Memory impairment [Unknown]
  - Illness [Unknown]
  - Drug level decreased [Unknown]
  - Labelled drug-drug interaction medication error [Unknown]

NARRATIVE: CASE EVENT DATE: 20220101
